FAERS Safety Report 16408292 (Version 2)
Quarter: 2019Q2

REPORT INFORMATION
  Report Type: Spontaneous
  Country: KR (occurrence: KR)
  Receive Date: 20190610
  Receipt Date: 20190610
  Transmission Date: 20190711
  Serious: Yes (Death, Hospitalization, Other)
  Sender: FDA-Public Use
  Company Number: KR-009507513-1906KOR001663

PATIENT
  Sex: Female

DRUGS (10)
  1. SODIUM CHLORIDE. [Concomitant]
     Active Substance: SODIUM CHLORIDE
     Dosage: 100MG, QUANTITY 2, DAYS 1
     Dates: start: 20190308, end: 20190308
  2. GODEX (ADENINE HYDROCHLORIDE (+) BIFENDATE (+) CARNITINE OROTATE (+) C [Concomitant]
     Dosage: QUANTITY 3, DAYS 1
     Dates: start: 20190308, end: 20190308
  3. ONSERAN [Concomitant]
     Dosage: 8MG, QUANTITY 1, DAYS 1
     Dates: start: 20190308, end: 20190308
  4. SODIUM CHLORIDE. [Concomitant]
     Active Substance: SODIUM CHLORIDE
     Dosage: 500MG, QUANTITY 1, DAYS 7
     Dates: start: 20190307, end: 20190314
  5. KEYTRUDA [Suspect]
     Active Substance: PEMBROLIZUMAB
     Indication: NON-SMALL CELL LUNG CANCER
     Dosage: QUANTITY 1, DAYS 1
     Dates: start: 20190308, end: 20190308
  6. SODIUM CHLORIDE. [Concomitant]
     Active Substance: SODIUM CHLORIDE
     Dosage: QUANTITY 1, DAYS 9
     Dates: start: 20190307, end: 20190315
  7. SODIUM CHLORIDE. [Concomitant]
     Active Substance: SODIUM CHLORIDE
     Dosage: QUANTITY 2, DAYS 1
     Dates: start: 20190315, end: 20190315
  8. GALVUS MET [Concomitant]
     Active Substance: METFORMIN HYDROCHLORIDE\VILDAGLIPTIN
     Dosage: QUANTITY 2, DAYS 23
     Dates: start: 20190307, end: 20190316
  9. SODIUM CHLORIDE. [Concomitant]
     Active Substance: SODIUM CHLORIDE
     Dosage: 500MG, QUANTITY 2, DAYS 2
     Dates: start: 20190308, end: 20190315
  10. SODIUM CHLORIDE. [Concomitant]
     Active Substance: SODIUM CHLORIDE
     Dosage: 100MG, QUANTITY 2, DAYS 1
     Dates: start: 20190308, end: 20190308

REACTIONS (3)
  - Malignant neoplasm progression [Fatal]
  - Oxygen therapy [Unknown]
  - Adverse event [Unknown]

NARRATIVE: CASE EVENT DATE: 2019
